FAERS Safety Report 19304543 (Version 3)
Quarter: 2021Q2

REPORT INFORMATION
  Report Type: Spontaneous
  Country: US (occurrence: US)
  Receive Date: 20210525
  Receipt Date: 20210617
  Transmission Date: 20210717
  Serious: Yes (Hospitalization)
  Sender: FDA-Public Use
  Company Number: US-SA-2021SA167499

PATIENT
  Age: 71 Year
  Sex: Female

DRUGS (1)
  1. LANTUS SOLOSTAR [Suspect]
     Active Substance: INSULIN GLARGINE
     Indication: TYPE 2 DIABETES MELLITUS
     Dosage: 36 IU, QD
     Route: 065

REACTIONS (5)
  - Wrong technique in product usage process [Unknown]
  - Diabetic complication [Recovering/Resolving]
  - Crying [Recovering/Resolving]
  - Contusion [Recovering/Resolving]
  - Blood glucose decreased [Recovering/Resolving]
